FAERS Safety Report 13994898 (Version 2)
Quarter: 2017Q4

REPORT INFORMATION
  Report Type: Report from Study
  Country: JP (occurrence: JP)
  Receive Date: 20170921
  Receipt Date: 20171106
  Transmission Date: 20180321
  Serious: Yes (Hospitalization)
  Sender: FDA-Public Use
  Company Number: JP-ROCHE-1995523

PATIENT
  Age: 15 Year
  Sex: Male
  Weight: 49 kg

DRUGS (13)
  1. DAIPHEN [Suspect]
     Active Substance: SULFAMETHOXAZOLE\TRIMETHOPRIM
     Indication: INFECTION PROPHYLAXIS
     Dosage: FRACTIONATION DOSE UNCERTAIN FREQUENCY AND DOSE INTERVAL UNCERTAINTY
     Route: 048
     Dates: start: 20160917, end: 20161028
  2. PREDNISOLONE. [Concomitant]
     Active Substance: PREDNISOLONE
     Indication: NEPHROTIC SYNDROME
     Dosage: MAXIMUM AMOUNT DURING THE PERIOD: 60 MG / DAY, MINIMUM AMOUNT: 5 MG / DAY,FRACTIONATION DOSE UNCERTA
     Route: 048
     Dates: start: 20150701, end: 20150908
  3. PREDNISOLONE. [Concomitant]
     Active Substance: PREDNISOLONE
     Indication: NEPHROTIC SYNDROME
     Dosage: MAXIMUM AMOUNT DURING THE PERIOD: 60 MG / DAY, MINIMUM AMOUNT: 5 MG / DAY,FRACTIONATION DOSE UNCERTA
     Route: 048
     Dates: start: 2016, end: 20160429
  4. RITUXIMAB. [Suspect]
     Active Substance: RITUXIMAB
     Indication: NEPHROTIC SYNDROME
     Route: 041
     Dates: start: 20150803, end: 20150803
  5. RITUXIMAB. [Suspect]
     Active Substance: RITUXIMAB
     Indication: NEPHROTIC SYNDROME
     Route: 041
     Dates: start: 20150810, end: 20150810
  6. MYCOPHENOLATE MOFETIL. [Suspect]
     Active Substance: MYCOPHENOLATE MOFETIL
     Indication: NEPHROTIC SYNDROME
     Dosage: FRACTIONATION DOSE UNCERTAIN FREQUENCY AND DOSE INTERVAL WAS UNCERTAIN
     Route: 048
     Dates: start: 20160917, end: 20161003
  7. RITUXIMAB. [Suspect]
     Active Substance: RITUXIMAB
     Indication: NEPHROTIC SYNDROME
     Route: 041
     Dates: start: 20160401, end: 20160401
  8. RITUXIMAB. [Suspect]
     Active Substance: RITUXIMAB
     Indication: NEPHROTIC SYNDROME
     Route: 041
     Dates: start: 20160916, end: 20160916
  9. PREDNISOLONE. [Concomitant]
     Active Substance: PREDNISOLONE
     Indication: NEPHROTIC SYNDROME
     Dosage: MAXIMUM AMOUNT DURING THE PERIOD: 60 MG / DAY, MINIMUM AMOUNT: 15 MG / DAY,FRACTIONATION DOSE UNCERT
     Route: 048
     Dates: start: 20160531, end: 2016
  10. MYCOPHENOLATE MOFETIL. [Suspect]
     Active Substance: MYCOPHENOLATE MOFETIL
     Indication: NEPHROTIC SYNDROME
     Dosage: FRACTIONATION DOSE UNCERTAIN FREQUENCY AND DOSE INTERVAL UNCERTAINTY
     Route: 048
     Dates: start: 20161004, end: 20161028
  11. PREDNISOLONE. [Concomitant]
     Active Substance: PREDNISOLONE
     Indication: NEPHROTIC SYNDROME
     Dosage: MAXIMUM AMOUNT DURING THE PERIOD: 60 MG / DAY, MINIMUM AMOUNT: 60 MG / DAY,FRACTIONATION DOSE UNCERT
     Route: 048
     Dates: start: 20160107, end: 2016
  12. PREDNISOLONE. [Concomitant]
     Active Substance: PREDNISOLONE
     Indication: NEPHROTIC SYNDROME
     Dosage: MAXIMUM AMOUNT DURING THE PERIOD: 60 MG / DAY, MINIMUM AMOUNT: 5 MG / DAY,FRACTIONATION DOSE UNCERTA
     Route: 048
     Dates: start: 2016, end: 20161122
  13. PREDNISOLONE. [Concomitant]
     Active Substance: PREDNISOLONE
     Indication: NEPHROTIC SYNDROME
     Dosage: MAXIMUM AMOUNT DURING THE PERIOD: 60 MG / DAY, MINIMUM AMOUNT: 5 MG / DAY,FRACTIONATION DOSE UNCERTA
     Route: 048
     Dates: start: 20170210, end: 20170516

REACTIONS (4)
  - Headache [Unknown]
  - Pyrexia [Recovered/Resolved]
  - Agranulocytosis [Recovered/Resolved]
  - Off label use [Unknown]

NARRATIVE: CASE EVENT DATE: 20161025
